FAERS Safety Report 7160403-1 (Version None)
Quarter: 2010Q4

REPORT INFORMATION
  Report Type: 
  Country: None (occurrence: None)
  Receive Date: 20101214
  Receipt Date: 20091209
  Transmission Date: 20110411
  Serious: No
  Sender: FDA-Public Use
  Company Number: US-AMGEN-KDL379443

PATIENT

DRUGS (2)
  1. ENBREL [Suspect]
     Indication: RHEUMATOID ARTHRITIS
     Dosage: 50 MG, QWK
     Route: 058
  2. HYDROXYCHLOROQUINE [Concomitant]
     Dosage: UNK UNK, UNK

REACTIONS (12)
  - DECREASED APPETITE [None]
  - DIARRHOEA [None]
  - GASTROINTESTINAL PAIN [None]
  - INFLAMMATION [None]
  - LETHARGY [None]
  - MIGRAINE [None]
  - MUSCLE TWITCHING [None]
  - ORAL FUNGAL INFECTION [None]
  - OROPHARYNGEAL PAIN [None]
  - PAIN [None]
  - SINUS HEADACHE [None]
  - TOOTH FRACTURE [None]
